FAERS Safety Report 25076064 (Version 1)
Quarter: 2025Q1

REPORT INFORMATION
  Report Type: Spontaneous
  Country: US (occurrence: US)
  Receive Date: 20250313
  Receipt Date: 20250313
  Transmission Date: 20250408
  Serious: No
  Sender: INCYTE
  Company Number: US-EVENT-001972

PATIENT
  Age: 79 Year

DRUGS (1)
  1. OPZELURA [Suspect]
     Active Substance: RUXOLITINIB PHOSPHATE
     Indication: Dermatitis atopic
     Dosage: 1.5 PERCENT, BID (APPLY TO AFFECTED AREA(S) OF BODY TWICE DAILY AS DIRECTED)

REACTIONS (1)
  - Application site pain [Unknown]
